FAERS Safety Report 10038463 (Version 1)
Quarter: 2014Q1

REPORT INFORMATION
  Report Type: Spontaneous
  Country: US (occurrence: None)
  Receive Date: 20140306
  Receipt Date: 20140306
  Transmission Date: 20141002
  Serious: Yes (Other)
  Sender: FDA-Public Use
  Company Number: 163-21880-13072803

PATIENT
  Age: 80 Year
  Sex: Female

DRUGS (8)
  1. REVLIMID (LENALIDOMIDE) (5 MILLIGRAM, CAPSULES) [Suspect]
     Indication: MYELODYSPLASTIC SYNDROME
     Dosage: 5 MG, 1 IN 1 D, PO 12/ 2008 - UNKNOWN THERAPY DATES
     Route: 048
     Dates: start: 200812
  2. POTASSIUM CL (POTASSIUM CHLORIDE) (TABLETS) [Concomitant]
  3. LASIX (FUROSEMIDE) (TABLETS) [Concomitant]
  4. PREDNISONE (PREDNISONE) (TABLETS) [Concomitant]
  5. DIPHENOXYLATE / ATROPINE (LOMOTIL) (LIQUID) [Concomitant]
  6. COUMADIN (WARFARIN SODIUM) (TABLETS) [Concomitant]
  7. LIPITOR (ATORVASTATIN) (TABLETS) [Concomitant]
  8. ZEMPLAR (PARICALCITOL) (CAPSULES) [Concomitant]

REACTIONS (3)
  - Thrombosis [None]
  - Pulmonary embolism [None]
  - Pruritus [None]
